FAERS Safety Report 8295491-2 (Version None)
Quarter: 2012Q2

REPORT INFORMATION
  Report Type: 
  Country: None (occurrence: None)
  Receive Date: 20120418
  Receipt Date: 20120222
  Transmission Date: 20120825
  Serious: No
  Sender: FDA-Public Use
  Company Number: US-ASTRAZENECA-2012SE08275

PATIENT
  Age: 57 Year
  Sex: Female
  Weight: 72.6 kg

DRUGS (6)
  1. NEXIUM [Suspect]
     Indication: GASTROOESOPHAGEAL REFLUX DISEASE
     Dosage: TWO TIMES A DAY
     Route: 048
  2. OMEPRAZOLE [Suspect]
     Route: 048
  3. DOPONEX [Concomitant]
  4. SYMBICORT [Suspect]
     Dosage: UNKNOWN FREQUENCY
     Route: 055
  5. SYNTHROID [Concomitant]
  6. SPIRIVA [Concomitant]

REACTIONS (5)
  - OESOPHAGEAL DISORDER [None]
  - OFF LABEL USE [None]
  - HIATUS HERNIA [None]
  - VOMITING [None]
  - DRUG INEFFECTIVE [None]
